FAERS Safety Report 8525031-1 (Version None)
Quarter: 2012Q3

REPORT INFORMATION
  Report Type: 
  Country: None (occurrence: None)
  Receive Date: 20120720
  Receipt Date: 20120711
  Transmission Date: 20120928
  Serious: Yes (Other)
  Sender: FDA-Public Use
  Company Number: AT-BRISTOL-MYERS SQUIBB COMPANY-16735672

PATIENT
  Age: 42 Year
  Sex: Female

DRUGS (2)
  1. DASATINIB [Suspect]
     Indication: MYELOPROLIFERATIVE DISORDER
  2. NILOTINIB [Suspect]
     Dosage: DOSE REDUCED TO 300MG/DAY; INTERR: JUN- AUG-2011 AND RESTARTED IN AUG-2011

REACTIONS (1)
  - PANCYTOPENIA [None]
